FAERS Safety Report 26130583 (Version 1)
Quarter: 2025Q4

REPORT INFORMATION
  Report Type: Spontaneous
  Country: US (occurrence: None)
  Receive Date: 20251205
  Receipt Date: 20251205
  Transmission Date: 20260118
  Serious: Yes (Disabling)
  Sender: FDA-CTU
  Company Number: None

PATIENT
  Age: 87 Year
  Sex: Female

DRUGS (1)
  1. PREDNISONE [Suspect]
     Active Substance: PREDNISONE
     Dosage: PREDNISONE TAB 10MG   ....?

REACTIONS (5)
  - Blindness [None]
  - Contusion [None]
  - Crying [None]
  - Product dispensing error [None]
  - Wrong product administered [None]
